FAERS Safety Report 7132068-6 (Version None)
Quarter: 2010Q4

REPORT INFORMATION
  Report Type: 
  Country: None (occurrence: None)
  Receive Date: 20101202
  Receipt Date: 20101123
  Transmission Date: 20110411
  Serious: Yes (Hospitalization, Other)
  Sender: FDA-Public Use
  Company Number: BR-ASTRAZENECA-2010SE01138

PATIENT
  Age: 66 Year
  Sex: Male
  Weight: 94 kg

DRUGS (3)
  1. ATACAND HCT [Suspect]
     Indication: HYPERTENSION
     Dosage: 8/12.5 MG OD
     Route: 048
     Dates: start: 20090301, end: 20100101
  2. SIMVASTATIN [Concomitant]
     Indication: BLOOD CHOLESTEROL ABNORMAL
     Route: 048
     Dates: start: 20070101
  3. COUMADIN [Concomitant]
     Indication: ANTICOAGULANT THERAPY
     Route: 048
     Dates: start: 20070101

REACTIONS (3)
  - BLOOD URINE PRESENT [None]
  - COAGULOPATHY [None]
  - HYPOTENSION [None]
